FAERS Safety Report 8136993-9 (Version None)
Quarter: 2012Q1

REPORT INFORMATION
  Report Type: 
  Country: None (occurrence: None)
  Receive Date: 20120215
  Receipt Date: 20120201
  Transmission Date: 20120608
  Serious: Yes (Other)
  Sender: FDA-Public Use
  Company Number: SE-AMGEN-US362498

PATIENT
  Age: 59 Year
  Sex: Female

DRUGS (7)
  1. PREDNISOLONE [Concomitant]
  2. FERROUS SULFATE TAB [Concomitant]
  3. ETANERCEPT [Suspect]
     Indication: RHEUMATOID ARTHRITIS
     Dosage: UNK
     Dates: start: 20030929, end: 20090615
  4. CITALOPRAM HYDROBROMIDE [Concomitant]
  5. PARACETAMOL [Concomitant]
  6. FOLIC ACID [Concomitant]
  7. PROPOXYPHENE HCL [Concomitant]

REACTIONS (1)
  - COLON CANCER [None]
